FAERS Safety Report 20747135 (Version 1)
Quarter: 2022Q2

REPORT INFORMATION
  Report Type: Spontaneous
  Country: US (occurrence: US)
  Receive Date: 20220425
  Receipt Date: 20220425
  Transmission Date: 20220721
  Serious: No
  Sender: FDA-Public Use
  Company Number: US-PFIZER INC-202100994769

PATIENT
  Weight: 58.957 kg

DRUGS (1)
  1. PREGABALIN [Suspect]
     Active Substance: PREGABALIN
     Indication: Arthritis
     Dosage: 100 MG, 3X/DAY (3 TIMES A DAY FOR 90 DAYS BUT THEY FILL FOR 60 DAYS)

REACTIONS (3)
  - Off label use [Unknown]
  - Burning sensation [Unknown]
  - Feeling abnormal [Unknown]
